FAERS Safety Report 5961275-0 (Version None)
Quarter: 2008Q4

REPORT INFORMATION
  Report Type: 
  Country: None (occurrence: None)
  Receive Date: 20081121
  Receipt Date: 20081110
  Transmission Date: 20090506
  Serious: Yes (Death, Hospitalization)
  Sender: FDA-Public Use
  Company Number: JP-AMGEN-US317643

PATIENT
  Sex: Female
  Weight: 31 kg

DRUGS (16)
  1. ENBREL [Suspect]
     Indication: RHEUMATOID ARTHRITIS
     Route: 058
     Dates: start: 20060620, end: 20080830
  2. RHEUMATREX [Suspect]
     Indication: RHEUMATOID ARTHRITIS
     Dosage: 2 MG, FREQUENCY UNSPECIFIED
     Route: 048
     Dates: start: 20050622, end: 20080906
  3. LOXONIN [Concomitant]
     Indication: RHEUMATOID ARTHRITIS
     Route: 048
     Dates: start: 20060601, end: 20080906
  4. BREDININ [Concomitant]
     Indication: RHEUMATOID ARTHRITIS
     Route: 048
     Dates: start: 20060601, end: 20080906
  5. FOLIAMIN [Concomitant]
     Route: 048
     Dates: start: 20051208, end: 20080906
  6. ISONIAZID [Concomitant]
     Indication: ANTIBIOTIC PROPHYLAXIS
     Route: 048
     Dates: start: 19980525, end: 20080906
  7. LANSOPRAZOLE [Concomitant]
     Route: 048
     Dates: start: 20050311, end: 20080906
  8. FERROMIA [Concomitant]
     Dosage: UNSPECIFIED
     Route: 048
     Dates: start: 20050818, end: 20080802
  9. ALFAROL [Concomitant]
     Indication: OSTEOPOROSIS
     Route: 048
     Dates: end: 20080906
  10. BONALON [Concomitant]
     Indication: OSTEOPOROSIS
     Route: 048
     Dates: start: 20070222, end: 20080906
  11. VITAMEDIN [Concomitant]
     Route: 048
     Dates: start: 20080119, end: 20080906
  12. MAGNESIUM OXIDE [Concomitant]
     Indication: CONSTIPATION
     Route: 048
     Dates: start: 20050906, end: 20080816
  13. ARTZ [Concomitant]
     Indication: RHEUMATOID ARTHRITIS
     Route: 051
     Dates: start: 20050920, end: 20080816
  14. CELESTONE [Concomitant]
     Indication: RHEUMATOID ARTHRITIS
     Dates: start: 20050920, end: 20080816
  15. ELCITONIN [Concomitant]
     Indication: OSTEOPOROSIS
     Route: 030
     Dates: start: 20051018, end: 20080816
  16. PREDONINE [Concomitant]
     Indication: RHEUMATOID ARTHRITIS
     Route: 048
     Dates: end: 20080906

REACTIONS (3)
  - FEMUR FRACTURE [None]
  - PNEUMONIA [None]
  - RESPIRATORY FAILURE [None]
